FAERS Safety Report 6522744-8 (Version None)
Quarter: 2009Q4

REPORT INFORMATION
  Report Type: 
  Country: None (occurrence: None)
  Receive Date: 20091230
  Receipt Date: 20091222
  Transmission Date: 20100525
  Serious: Yes (Hospitalization)
  Sender: FDA-Public Use
  Company Number: US-JNJFOC-20091100656

PATIENT
  Sex: Male
  Weight: 12.25 kg

DRUGS (13)
  1. TYLENOL (CAPLET) [Suspect]
     Indication: RESPIRATORY DISORDER
     Route: 048
  2. TYLENOL (CAPLET) [Suspect]
     Dosage: ONE DOSE (AMOUNT UNSPECIFIED)
     Route: 048
  3. TYLENOL (CAPLET) [Suspect]
     Indication: EAR INFECTION
     Route: 048
  4. TYLENOL (CAPLET) [Suspect]
     Dosage: ONE DOSE (AMOUNT UNSPECIFIED)
     Route: 048
  5. TYLENOL (CAPLET) [Suspect]
     Indication: PYREXIA
     Route: 048
  6. TYLENOL (CAPLET) [Suspect]
     Dosage: ONE DOSE (AMOUNT UNSPECIFIED)
     Route: 048
  7. ANTIBIOTICS [Concomitant]
     Indication: EAR INFECTION
  8. PULMICORT [Concomitant]
     Indication: WHEEZING
  9. PULMICORT [Concomitant]
     Indication: RESPIRATORY DISORDER
  10. XOPENEX [Concomitant]
     Indication: WHEEZING
  11. XOPENEX [Concomitant]
     Indication: RESPIRATORY DISORDER
  12. FORADIL [Concomitant]
     Indication: WHEEZING
  13. FORADIL [Concomitant]
     Indication: RESPIRATORY DISORDER

REACTIONS (2)
  - BRONCHIAL HYPERREACTIVITY [None]
  - TRANSMISSION OF AN INFECTIOUS AGENT VIA A MEDICINAL PRODUCT [None]
